FAERS Safety Report 25590921 (Version 1)
Quarter: 2025Q3

REPORT INFORMATION
  Report Type: Spontaneous
  Country: US (occurrence: None)
  Receive Date: 20250721
  Receipt Date: 20250721
  Transmission Date: 20251021
  Serious: Yes (Death, Hospitalization)
  Sender: FDA-CTU
  Company Number: None

PATIENT
  Age: 74 Year
  Sex: Male

DRUGS (1)
  1. PIRFENIDONE [Suspect]
     Active Substance: PIRFENIDONE
     Indication: Interstitial lung disease
     Dosage: FREQUENCY : DAILY;?
     Route: 048
     Dates: start: 20241003, end: 20250707

REACTIONS (5)
  - Acute respiratory failure [None]
  - Pneumonia viral [None]
  - Idiopathic pulmonary fibrosis [None]
  - Hypervolaemia [None]
  - Renal impairment [None]

NARRATIVE: CASE EVENT DATE: 20250708
